FAERS Safety Report 23719144 (Version 1)
Quarter: 2024Q2

REPORT INFORMATION
  Report Type: Spontaneous
  Country: CN (occurrence: CN)
  Receive Date: 20240408
  Receipt Date: 20240408
  Transmission Date: 20240716
  Serious: Yes (Life-Threatening, Hospitalization)
  Sender: FDA-Public Use
  Company Number: CN-FreseniusKabi-FK202405613

PATIENT
  Age: 54 Year
  Sex: Male
  Weight: 70 kg

DRUGS (3)
  1. PROPOFOL [Suspect]
     Active Substance: PROPOFOL
     Indication: Induction of anaesthesia
     Dosage: EMULSION FOR INFUSION/INJECTION
     Route: 042
     Dates: start: 20240325, end: 20240325
  2. SUFENTANIL CITRATE [Suspect]
     Active Substance: SUFENTANIL CITRATE
     Indication: Induction of anaesthesia
     Dosage: FORM OF ADMIN: INJECTION
     Route: 042
     Dates: start: 20240325, end: 20240325
  3. ROCURONIUM BROMIDE [Suspect]
     Active Substance: ROCURONIUM BROMIDE
     Indication: Induction of anaesthesia
     Dosage: FORM OF ADMIN: INJECTION
     Route: 042
     Dates: start: 20240325, end: 20240325

REACTIONS (1)
  - Anaphylactic shock [Recovered/Resolved]

NARRATIVE: CASE EVENT DATE: 20240325
